FAERS Safety Report 5278722-2 (Version None)
Quarter: 2007Q1

REPORT INFORMATION
  Report Type: 
  Country: None (occurrence: None)
  Receive Date: 20070328
  Receipt Date: 20070312
  Transmission Date: 20070707
  Serious: Yes (Other)
  Sender: FDA-Public Use
  Company Number: US-SANOFI-SYNTHELABO-A03200702322

PATIENT
  Sex: Female

DRUGS (5)
  1. WELLBUTRIN SR [Concomitant]
     Route: 065
  2. SINGULAIR [Concomitant]
     Dosage: UNK
     Route: 065
  3. CLARINEX [Concomitant]
     Dosage: UNK
     Route: 065
  4. ADIPEX [Concomitant]
     Route: 065
  5. AMBIEN [Suspect]
     Indication: INSOMNIA
     Route: 048
     Dates: start: 20030622, end: 20040918

REACTIONS (5)
  - DIPLOPIA [None]
  - DRUG INEFFECTIVE [None]
  - EATING DISORDER [None]
  - HALLUCINATION, VISUAL [None]
  - SLEEP WALKING [None]
